FAERS Safety Report 15821454 (Version 1)
Quarter: 2018Q4

REPORT INFORMATION
  Report Type: Spontaneous
  Country: US (occurrence: US)
  Receive Date: 20181217
  Receipt Date: 20181217
  Transmission Date: 20190205
  Serious: Yes (Death)
  Sender: FDA-Public Use
  Company Number: None

PATIENT
  Age: 46 Year
  Sex: Male
  Weight: 77 kg

DRUGS (1)
  1. BEVACIZUMAB (RHUMAB VEGF) (704865) [Suspect]
     Active Substance: BEVACIZUMAB

REACTIONS (6)
  - Disease progression [None]
  - Insurance issue [None]
  - Gait disturbance [None]
  - Brain stem syndrome [None]
  - Fall [None]
  - Diplopia [None]

NARRATIVE: CASE EVENT DATE: 20181203
